FAERS Safety Report 9138944 (Version 1)
Quarter: 2013Q1

REPORT INFORMATION
  Report Type: Spontaneous
  Country: US (occurrence: US)
  Receive Date: 20130305
  Receipt Date: 20130305
  Transmission Date: 20140127
  Serious: No
  Sender: FDA-Public Use
  Company Number: US-PFIZER INC-2013072110

PATIENT
  Age: 72 Year
  Sex: Female
  Weight: 81.63 kg

DRUGS (2)
  1. TOVIAZ [Suspect]
     Indication: URINARY TRACT INFECTION
     Dosage: 8 MG, 1X/DAY
     Dates: end: 201301
  2. TOVIAZ [Suspect]
     Indication: POLLAKIURIA

REACTIONS (3)
  - Discomfort [Not Recovered/Not Resolved]
  - Pollakiuria [Not Recovered/Not Resolved]
  - Off label use [Unknown]
